FAERS Safety Report 25592112 (Version 2)
Quarter: 2025Q3

REPORT INFORMATION
  Report Type: Report from Study
  Country: US (occurrence: US)
  Receive Date: 20250722
  Receipt Date: 20250819
  Transmission Date: 20251020
  Serious: Yes (Hospitalization, Other)
  Sender: ABBVIE
  Company Number: US-ABBVIE-6380295

PATIENT
  Sex: Female
  Weight: 37.195 kg

DRUGS (2)
  1. HUMIRA [Suspect]
     Active Substance: ADALIMUMAB
     Indication: Crohn^s disease
     Route: 058
     Dates: start: 20230407
  2. HUMIRA [Suspect]
     Active Substance: ADALIMUMAB
     Route: 058
     Dates: start: 20201012

REACTIONS (6)
  - Weight decreased [Unknown]
  - Infection [Unknown]
  - Asthenia [Unknown]
  - Inflammation [Unknown]
  - Renal failure [Unknown]
  - Walking aid user [Unknown]
